FAERS Safety Report 7325829-1 (Version None)
Quarter: 2011Q1

REPORT INFORMATION
  Report Type: 
  Country: None (occurrence: None)
  Receive Date: 20110302
  Receipt Date: 20110106
  Transmission Date: 20110831
  Serious: Yes (Hospitalization)
  Sender: FDA-Public Use
  Company Number: CH-AMGEN-UK341766

PATIENT
  Age: 73 Year
  Sex: Male

DRUGS (1)
  1. CINACALCET HYDROCHLORIDE [Suspect]
     Indication: HYPERPARATHYROIDISM PRIMARY
     Dosage: UNK UNK, QD
     Route: 065
     Dates: start: 20061212, end: 20070404

REACTIONS (3)
  - NAUSEA [None]
  - CONDITION AGGRAVATED [None]
  - ABDOMINAL PAIN [None]
